FAERS Safety Report 9263415 (Version 1)
Quarter: 2013Q2

REPORT INFORMATION
  Report Type: Spontaneous
  Country: US (occurrence: US)
  Receive Date: 20130430
  Receipt Date: 20130430
  Transmission Date: 20140414
  Serious: No
  Sender: FDA-Public Use
  Company Number: US-ABBOTT-13P-163-1068840-00

PATIENT
  Age: 13 Year
  Sex: Female
  Weight: 36.32 kg

DRUGS (2)
  1. CREON [Suspect]
     Indication: MALAISE
     Route: 048
     Dates: start: 20130315, end: 20130320
  2. ONDANSETRON [Concomitant]
     Indication: NAUSEA

REACTIONS (1)
  - Abdominal pain [Not Recovered/Not Resolved]
